FAERS Safety Report 6338060-3 (Version None)
Quarter: 2009Q3

REPORT INFORMATION
  Report Type: 
  Country: None (occurrence: None)
  Receive Date: 20090902
  Receipt Date: 20090824
  Transmission Date: 20100115
  Serious: Yes (Life-Threatening, Hospitalization)
  Sender: FDA-Public Use
  Company Number: PHHY2009DE27197

PATIENT
  Sex: Male

DRUGS (4)
  1. ACLASTA [Suspect]
     Indication: OSTEOPOROSIS
     Dosage: 5 MG ONCE YEARLY
     Route: 042
     Dates: start: 20090524, end: 20090524
  2. PURINETHOL [Suspect]
     Indication: CROHN'S DISEASE
     Dosage: 50 MG, TID
     Route: 048
     Dates: start: 20070301, end: 20090601
  3. CALCIMAGON-D3 [Concomitant]
     Indication: OSTEOPOROSIS
     Dosage: 1 DF, BID
     Route: 048
  4. BUDENOFALK [Concomitant]
     Indication: CROHN'S DISEASE
     Dosage: 3 MG, TID
     Route: 048
     Dates: start: 20090501

REACTIONS (4)
  - CHOLANGITIS SCLEROSING [None]
  - HEPATIC FAILURE [None]
  - HEPATITIS [None]
  - JAUNDICE [None]
